FAERS Safety Report 19265149 (Version 1)
Quarter: 2021Q2

REPORT INFORMATION
  Report Type: Spontaneous
  Country: GB (occurrence: GB)
  Receive Date: 20210517
  Receipt Date: 20210517
  Transmission Date: 20210717
  Serious: Yes (Life-Threatening, Hospitalization, Disabling, Other)
  Sender: FDA-Public Use
  Company Number: GB-MYLANLABS-2021M1028716

PATIENT
  Age: 73 Year
  Sex: Female
  Weight: 44 kg

DRUGS (15)
  1. HYOSCINE BUTYLBROMIDE [Concomitant]
     Active Substance: BUTYLSCOPOLAMINE BROMIDE
     Indication: PRODUCT USED FOR UNKNOWN INDICATION
     Dosage: ONE OR TWO THREE TIMES A DAY
     Dates: start: 20210319
  2. PARACETAMOL [Concomitant]
     Active Substance: ACETAMINOPHEN
     Indication: PRODUCT USED FOR UNKNOWN INDICATION
     Dosage: 1?2 TABS 4?6HRLY WHEN REQUIRED. MAXIMUM 8 IN ANY 24 HRS
     Dates: start: 20210304
  3. LORAZEPAM. [Concomitant]
     Active Substance: LORAZEPAM
     Dosage: ONE AT NIGHT
     Dates: start: 20210319, end: 20210430
  4. INDAPAMIDE. [Suspect]
     Active Substance: INDAPAMIDE
     Indication: PRODUCT USED FOR UNKNOWN INDICATION
     Dosage: UNK
     Route: 048
     Dates: start: 20210111, end: 20210115
  5. AMLODIPINE [Concomitant]
     Active Substance: AMLODIPINE BESYLATE
     Indication: PRODUCT USED FOR UNKNOWN INDICATION
     Dosage: 1 DOSAGE FORM, QD, 1 TABLET ONCE A DAY
     Dates: start: 20210430
  6. LORAZEPAM. [Concomitant]
     Active Substance: LORAZEPAM
     Indication: PRODUCT USED FOR UNKNOWN INDICATION
     Dosage: HALF A TABLET AT NIGHT
     Dates: start: 20210304
  7. LORAZEPAM. [Concomitant]
     Active Substance: LORAZEPAM
     Dosage: ONE TWICE A DAY
     Dates: start: 20210430
  8. ERYTHROMYCIN. [Concomitant]
     Active Substance: ERYTHROMYCIN
     Dosage: 1 FOUR TIMES A DAY
     Dates: start: 20210430
  9. LORAZEPAM. [Concomitant]
     Active Substance: LORAZEPAM
     Dosage: ONE AT NIGHT
     Dates: start: 20210329
  10. COCODAMOL [Concomitant]
     Active Substance: ACETAMINOPHEN\CODEINE PHOSPHATE
     Indication: PRODUCT USED FOR UNKNOWN INDICATION
     Dosage: ONE TO TWO TABLETS EVERY 4?6 HOURS, MAXIMUM 8 TABS IN 24 HOURS
     Dates: start: 20210409
  11. ERYTHROMYCIN. [Concomitant]
     Active Substance: ERYTHROMYCIN
     Indication: PRODUCT USED FOR UNKNOWN INDICATION
     Dosage: 1 FOUR TIMES A DAY
     Dates: start: 20210326
  12. PARACETAMOL [Concomitant]
     Active Substance: ACETAMINOPHEN
     Dosage: 1?2 TABS 4?6HRLY WHEN REQUIRED. MAXIMUM 8 IN ANY 24 HRS
     Dates: start: 20210319, end: 20210323
  13. AVAMYS [Concomitant]
     Active Substance: FLUTICASONE FUROATE
     Indication: PRODUCT USED FOR UNKNOWN INDICATION
     Dosage: TWO SPRAYS INTO EACH NOSTRIL ONCE DAILY
     Dates: start: 20210413
  14. COCODAMOL [Concomitant]
     Active Substance: ACETAMINOPHEN\CODEINE PHOSPHATE
     Dosage: ONE TO TWO TABLETS EVRY 4?6 HOURS, MAXIMUM 8 TABS
     Dates: start: 20210319
  15. LACTULOSE. [Concomitant]
     Active Substance: LACTULOSE
     Indication: PRODUCT USED FOR UNKNOWN INDICATION
     Dosage: 15 MLS TWICE A DAY
     Dates: start: 20210409

REACTIONS (1)
  - Hyponatraemia [Recovered/Resolved with Sequelae]

NARRATIVE: CASE EVENT DATE: 20210113
